FAERS Safety Report 15825506 (Version 1)
Quarter: 2018Q4

REPORT INFORMATION
  Report Type: Spontaneous
  Country: US (occurrence: US)
  Receive Date: 20181214
  Receipt Date: 20181214
  Transmission Date: 20190205
  Serious: Yes (Life-Threatening)
  Sender: FDA-Public Use
  Company Number: None

PATIENT
  Age: 62 Year
  Sex: Male
  Weight: 82 kg

DRUGS (1)
  1. LISINOPRIL. [Suspect]
     Active Substance: LISINOPRIL
     Indication: HYPERTENSION
     Route: 048
     Dates: start: 20060907, end: 20180905

REACTIONS (4)
  - Allergy to animal [None]
  - Rash pruritic [None]
  - Rash erythematous [None]
  - Angioedema [None]

NARRATIVE: CASE EVENT DATE: 20180712
